FAERS Safety Report 13277807 (Version 4)
Quarter: 2018Q2

REPORT INFORMATION
  Report Type: Report from Study
  Country: US (occurrence: US)
  Receive Date: 20170228
  Receipt Date: 20180510
  Transmission Date: 20180711
  Serious: Yes (Other)
  Sender: FDA-Public Use
  Company Number: US-GILEAD-2017-0259475

PATIENT
  Age: 63 Year
  Sex: Female
  Weight: 55.94 kg

DRUGS (2)
  1. LEDIPASVIR/SOFOSBUVIR [Suspect]
     Active Substance: LEDIPASVIR\SOFOSBUVIR
     Indication: CHRONIC HEPATITIS C
     Dosage: 1 DF, QD
     Route: 048
     Dates: start: 20160801, end: 20160926
  2. XANAX [Concomitant]
     Active Substance: ALPRAZOLAM
     Dosage: 0.25 MG, QHS PRN
     Route: 048

REACTIONS (21)
  - Mental disorder [Unknown]
  - Muscle atrophy [Not Recovered/Not Resolved]
  - Unevaluable event [Unknown]
  - Psychiatric symptom [Not Recovered/Not Resolved]
  - Hypoaesthesia [Not Recovered/Not Resolved]
  - Dizziness [Unknown]
  - Sensory loss [Not Recovered/Not Resolved]
  - Lacrimation decreased [Unknown]
  - Palpitations [Unknown]
  - Neuropathy peripheral [Not Recovered/Not Resolved]
  - Anxiety [Unknown]
  - Suicidal ideation [Unknown]
  - Arthropathy [Not Recovered/Not Resolved]
  - Unevaluable event [Not Recovered/Not Resolved]
  - Disturbance in attention [Unknown]
  - Headache [Unknown]
  - Weight decreased [Unknown]
  - Mania [Unknown]
  - Tinnitus [Not Recovered/Not Resolved]
  - Hypertension [Unknown]
  - Insomnia [Not Recovered/Not Resolved]

NARRATIVE: CASE EVENT DATE: 201608
